FAERS Safety Report 18184636 (Version 1)
Quarter: 2020Q3

REPORT INFORMATION
  Report Type: Spontaneous
  Country: CA (occurrence: CA)
  Receive Date: 20200824
  Receipt Date: 20200824
  Transmission Date: 20201103
  Serious: Yes (Hospitalization)
  Sender: FDA-Public Use
  Company Number: CA-TEVA-2020-CA-1817161

PATIENT
  Age: 58 Year
  Sex: Male

DRUGS (3)
  1. RAMIPRIL. [Suspect]
     Active Substance: RAMIPRIL
     Route: 065
  2. ROCEPHIN [Suspect]
     Active Substance: CEFTRIAXONE SODIUM
     Route: 042
  3. IODINATED CONTRAST MEDIA [Suspect]
     Active Substance: IODINE
     Route: 065

REACTIONS (5)
  - Paraesthesia [Recovered/Resolved]
  - Enlarged uvula [Recovered/Resolved]
  - Pharyngeal erythema [Recovered/Resolved]
  - Swelling [Recovered/Resolved]
  - Paraesthesia oral [Recovered/Resolved]
